FAERS Safety Report 4336532-4 (Version None)
Quarter: 2004Q2

REPORT INFORMATION
  Report Type: 
  Country: None (occurrence: None)
  Receive Date: 20040408
  Receipt Date: 20040408
  Transmission Date: 20050107
  Serious: Yes (Other)
  Sender: FDA-Public Use
  Company Number: None

PATIENT
  Sex: Female

DRUGS (1)
  1. STRATTERA [Suspect]

REACTIONS (3)
  - AGORAPHOBIA [None]
  - MEDICATION ERROR [None]
  - PSYCHOTIC DISORDER [None]
